FAERS Safety Report 4844688-X (Version None)
Quarter: 2005Q4

REPORT INFORMATION
  Report Type: 
  Country: None (occurrence: None)
  Receive Date: 20051129
  Receipt Date: 20051118
  Transmission Date: 20060501
  Serious: Yes (Hospitalization)
  Sender: FDA-Public Use
  Company Number: B0400943A

PATIENT
  Age: 44 Year
  Sex: Female

DRUGS (6)
  1. PAXIL [Suspect]
  2. CARBAMAZEPINE [Suspect]
  3. RISPERIDONE [Suspect]
     Dosage: 4 MG/ TWICE PER DAY/ UNKNONW
  4. BUSPIRONE [Concomitant]
  5. NADOLOL [Concomitant]
  6. HYDROXYZINE [Concomitant]

REACTIONS (12)
  - BLOOD CHLORIDE DECREASED [None]
  - BLOOD OSMOLARITY DECREASED [None]
  - BLOOD SODIUM DECREASED [None]
  - DIZZINESS [None]
  - GRAND MAL CONVULSION [None]
  - HYPONATRAEMIA [None]
  - LOSS OF CONSCIOUSNESS [None]
  - NYSTAGMUS [None]
  - OVERDOSE [None]
  - SENSORY DISTURBANCE [None]
  - TREATMENT NONCOMPLIANCE [None]
  - VISUAL DISTURBANCE [None]
